FAERS Safety Report 4649946-X (Version None)
Quarter: 2005Q2

REPORT INFORMATION
  Report Type: 
  Country: None (occurrence: None)
  Receive Date: 20050428
  Receipt Date: 20050420
  Transmission Date: 20051028
  Serious: Yes (Disabling, Other)
  Sender: FDA-Public Use
  Company Number: 2005-03-1194

PATIENT
  Age: 45 Year
  Sex: Male

DRUGS (5)
  1. PEG-INTRON [Suspect]
     Indication: HEPATITIS C
     Dosage: 120 MCG QW  SUBCUTANEOUS; SEE IMAGE
     Route: 058
     Dates: start: 20050101, end: 20050318
  2. PEG-INTRON [Suspect]
     Indication: HEPATITIS C
     Dosage: 120 MCG QW  SUBCUTANEOUS; SEE IMAGE
     Route: 058
     Dates: start: 20050415
  3. RIBAVIRIN [Suspect]
     Indication: HEPATITIS C
     Dosage: 1000 MG QD ORAL; SEE IMAGE
     Route: 048
     Dates: start: 20050101, end: 20050318
  4. RIBAVIRIN [Suspect]
     Indication: HEPATITIS C
     Dosage: 1000 MG QD ORAL; SEE IMAGE
     Route: 048
     Dates: start: 20050415
  5. ACETAMINOPHEN [Concomitant]

REACTIONS (4)
  - DEAFNESS TRANSITORY [None]
  - DRY EYE [None]
  - TINNITUS [None]
  - VISUAL ACUITY REDUCED [None]
